FAERS Safety Report 6578049-2 (Version None)
Quarter: 2010Q1

REPORT INFORMATION
  Report Type: 
  Country: None (occurrence: None)
  Receive Date: 20100211
  Receipt Date: 20100208
  Transmission Date: 20100710
  Serious: Yes (Death, Hospitalization)
  Sender: FDA-Public Use
  Company Number: BE-B.I. PHARMACEUTICALS,INC./RIDGEFIELD-2009-BL-00065BL

PATIENT
  Sex: Male
  Weight: 57.7 kg

DRUGS (3)
  1. BIBW 2992 [Suspect]
     Indication: HYPOPHARYNGEAL CANCER
     Dosage: 50 MG
     Route: 048
     Dates: start: 20090409
  2. CISPLATIN [Suspect]
     Indication: HYPOPHARYNGEAL CANCER
     Dosage: 75 MG/M?
     Route: 042
     Dates: start: 20090407, end: 20090407
  3. PACLITAXEL [Suspect]
     Indication: HYPOPHARYNGEAL CANCER
     Dosage: 175 MG/M?
     Route: 042
     Dates: start: 20090407, end: 20090407

REACTIONS (8)
  - BLOOD CREATININE INCREASED [None]
  - DIARRHOEA [None]
  - DYSPNOEA [None]
  - FEBRILE NEUTROPENIA [None]
  - HYPONATRAEMIA [None]
  - RENAL CANCER [None]
  - SEPTIC SHOCK [None]
  - VOMITING [None]
